FAERS Safety Report 9654722 (Version 2)
Quarter: 2013Q4

REPORT INFORMATION
  Report Type: Report from Study
  Country: US (occurrence: US)
  Receive Date: 20131029
  Receipt Date: 20131029
  Transmission Date: 20140711
  Serious: Yes (Other)
  Sender: FDA-Public Use
  Company Number: US-TEVA-434889USA

PATIENT
  Age: 42 Year
  Sex: Female
  Weight: 72.64 kg

DRUGS (2)
  1. MYCOPHENOLATE MOFETIL [Suspect]
     Indication: ANGIOLYMPHOID HYPERPLASIA WITH EOSINOPHILIA
     Dosage: 1000 MILLIGRAM DAILY;
     Dates: end: 20130814
  2. PREDNISONE [Concomitant]
     Dosage: AS NEEDED

REACTIONS (1)
  - Foetal death [Unknown]
